FAERS Safety Report 8774026 (Version 1)
Quarter: 2012Q4

REPORT INFORMATION
  Report Type: 
  Country: FR (occurrence: FR)
  Receive Date: 20120907
  Receipt Date: 20120907
  Transmission Date: 20130627
  Serious: Yes (Hospitalization)
  Sender: FDA-Public Use
  Company Number: FR-ASTRAZENECA-2012SE65838

PATIENT
  Sex: Female

DRUGS (4)
  1. TENORMINE [Suspect]
     Indication: ARRHYTHMIA
     Route: 048
  2. FLECAINE [Suspect]
     Indication: ARRHYTHMIA
     Route: 048
  3. TAHOR [Suspect]
     Indication: DYSLIPIDAEMIA
     Route: 048
  4. PROZAC [Suspect]
     Indication: DEPRESSIVE SYMPTOM
     Route: 048

REACTIONS (7)
  - Cerebral vasoconstriction [Recovered/Resolved]
  - Cerebral haemorrhage [Recovered/Resolved with Sequelae]
  - Malaise [Unknown]
  - Inflammation [Unknown]
  - Asthenia [Not Recovered/Not Resolved]
  - Viral infection [Unknown]
  - Rash [Recovered/Resolved]
